FAERS Safety Report 13072016 (Version 2)
Quarter: 2017Q1

REPORT INFORMATION
  Report Type: Spontaneous
  Country: TT (occurrence: TT)
  Receive Date: 20161229
  Receipt Date: 20170112
  Transmission Date: 20170428
  Serious: Yes (Disabling, Other)
  Sender: FDA-Public Use
  Company Number: TT-SA-2016SA232055

PATIENT
  Age: 36 Year
  Sex: Male

DRUGS (8)
  1. EPINEPHRINE. [Suspect]
     Active Substance: EPINEPHRINE
     Indication: CARDIAC ARREST
     Dosage: 10 MG/50 ML OF SOLUTION 0.9% AT 8 ML/HOUR
     Route: 041
  2. EPINEPHRINE. [Suspect]
     Active Substance: EPINEPHRINE
     Indication: CARDIAC ARREST
     Dosage: IV PUSH STAT 3 TIMES
  3. DOPAMINE HYDROCHLORIDE. [Suspect]
     Active Substance: DOPAMINE HYDROCHLORIDE
     Indication: CARDIAC ARREST
     Dosage: 400 MG/100 ML OF SOLUTION 0.9% AT 10 ML/HOUR
     Route: 041
  4. DOPAMINE HYDROCHLORIDE. [Suspect]
     Active Substance: DOPAMINE HYDROCHLORIDE
     Indication: CARDIAC ARREST
     Dosage: INTRAVENOUS
  5. ATROPINE. [Concomitant]
     Active Substance: ATROPINE
     Indication: CARDIAC ARREST
     Route: 042
  6. CEFTRIAXONE. [Concomitant]
     Active Substance: CEFTRIAXONE
     Route: 042
  7. ENOXAPARIN [Concomitant]
     Active Substance: ENOXAPARIN
     Route: 058
  8. EPINEPHRINE. [Suspect]
     Active Substance: EPINEPHRINE
     Indication: CARDIAC ARREST
     Dosage: INTRAVENOUS

REACTIONS (7)
  - Gangrene [Recovered/Resolved]
  - Oedema [Recovered/Resolved]
  - Peripheral coldness [Recovered/Resolved]
  - Erythema [Recovered/Resolved]
  - Capillary nail refill test abnormal [Recovered/Resolved]
  - Pallor [Recovered/Resolved]
  - Toe amputation [Unknown]
